FAERS Safety Report 7525069-7 (Version None)
Quarter: 2011Q2

REPORT INFORMATION
  Report Type: 
  Country: None (occurrence: None)
  Receive Date: 20110606
  Receipt Date: 20110531
  Transmission Date: 20111010
  Serious: Yes (Other)
  Sender: FDA-Public Use
  Company Number: US-SANOFI-AVENTIS-2011SA034415

PATIENT
  Age: 55 Year
  Sex: Female

DRUGS (5)
  1. TESTOSTERONE [Concomitant]
  2. ESTROGEN NOS [Concomitant]
  3. FLUOXETINE HCL [Concomitant]
  4. ALLEGRA [Suspect]
     Route: 048
     Dates: start: 20110526, end: 20110527
  5. GUAIFENESIN AND DEXTROMETHORPHAN HBR [Concomitant]

REACTIONS (2)
  - LETHARGY [None]
  - LOSS OF CONSCIOUSNESS [None]
